FAERS Safety Report 10691619 (Version 1)
Quarter: 2015Q1

REPORT INFORMATION
  Report Type: Spontaneous
  Country: US (occurrence: US)
  Receive Date: 20150105
  Receipt Date: 20150105
  Transmission Date: 20150720
  Serious: No
  Sender: FDA-Public Use
  Company Number: US-PFIZER INC-2015001661

PATIENT
  Age: 59 Year
  Sex: Female

DRUGS (1)
  1. XELJANZ [Suspect]
     Active Substance: TOFACITINIB CITRATE
     Dosage: UNK

REACTIONS (6)
  - Inflammation [Unknown]
  - Chest pain [Unknown]
  - Abdominal pain upper [Not Recovered/Not Resolved]
  - Headache [Unknown]
  - Pharyngeal inflammation [Unknown]
  - Muscular weakness [Unknown]
